FAERS Safety Report 9313466 (Version 1)
Quarter: 2013Q2

REPORT INFORMATION
  Report Type: Spontaneous
  Country: IT (occurrence: IT)
  Receive Date: 20130528
  Receipt Date: 20130528
  Transmission Date: 20140414
  Serious: Yes (Other)
  Sender: FDA-Public Use
  Company Number: IT-ELI_LILLY_AND_COMPANY-IT201303002317

PATIENT
  Sex: Female

DRUGS (2)
  1. FORSTEO [Suspect]
     Dosage: UNK
     Dates: start: 20121001, end: 20130205
  2. FOLIC ACID [Concomitant]

REACTIONS (1)
  - Gastric cancer [Not Recovered/Not Resolved]
